FAERS Safety Report 4313922-7 (Version None)
Quarter: 2004Q1

REPORT INFORMATION
  Report Type: 
  Country: None (occurrence: None)
  Receive Date: 20040305
  Receipt Date: 20040223
  Transmission Date: 20041129
  Serious: No
  Sender: FDA-Public Use
  Company Number: 2004SE00426

PATIENT
  Age: 56 Year
  Sex: Female

DRUGS (8)
  1. CANDESARTAN CILEXETIL [Suspect]
     Indication: DIABETIC RETINOPATHY
     Dates: start: 20031015, end: 20040108
  2. CANDESARTAN CILEXETIL [Suspect]
     Indication: DIABETIC RETINOPATHY
     Dates: start: 20040123
  3. GLICLAZIDE [Concomitant]
  4. METFORMIN HCL [Concomitant]
  5. SERETIDE [Concomitant]
  6. CELEBREX [Concomitant]
  7. MEDROL [Concomitant]
  8. TRANS ACT [Concomitant]

REACTIONS (2)
  - ARTHRALGIA [None]
  - PERIARTHRITIS [None]
